FAERS Safety Report 23194694 (Version 1)
Quarter: 2023Q4

REPORT INFORMATION
  Report Type: Spontaneous
  Country: US (occurrence: US)
  Receive Date: 20231117
  Receipt Date: 20231117
  Transmission Date: 20240110
  Serious: Yes (Other)
  Sender: FDA-Public Use
  Company Number: US-STRIDES ARCOLAB LIMITED-2023SP017013

PATIENT
  Age: 6 Decade
  Sex: Male

DRUGS (6)
  1. PREDNISOLONE [Suspect]
     Active Substance: PREDNISOLONE
     Indication: Palisaded neutrophilic granulomatous dermatitis
     Dosage: 3 MILLIGRAM/KILOGRAM, PER DAY
     Route: 065
  2. TRIAMCINOLONE ACETONIDE [Suspect]
     Active Substance: TRIAMCINOLONE ACETONIDE
     Indication: Palisaded neutrophilic granulomatous dermatitis
     Dosage: UNK, CREAM
     Route: 065
  3. CYCLOSPORINE [Suspect]
     Active Substance: CYCLOSPORINE
     Indication: Palisaded neutrophilic granulomatous dermatitis
     Dosage: 100 MILLIGRAM, BID
     Route: 065
  4. USTEKINUMAB [Concomitant]
     Active Substance: USTEKINUMAB
     Indication: Palisaded neutrophilic granulomatous dermatitis
     Dosage: UNK
     Route: 065
  5. DAPSONE [Concomitant]
     Active Substance: DAPSONE
     Indication: Palisaded neutrophilic granulomatous dermatitis
     Dosage: 100 MILLIGRAM, PER DAY
     Route: 065
  6. ADALIMUMAB [Concomitant]
     Active Substance: ADALIMUMAB\ISOPROPYL ALCOHOL
     Indication: Palisaded neutrophilic granulomatous dermatitis
     Dosage: UNK
     Route: 065

REACTIONS (2)
  - Chronic myelomonocytic leukaemia [Unknown]
  - Off label use [Unknown]
